FAERS Safety Report 21533327 (Version 1)
Quarter: 2022Q4

REPORT INFORMATION
  Report Type: Report from Study
  Country: US (occurrence: US)
  Receive Date: 20221101
  Receipt Date: 20221101
  Transmission Date: 20230113
  Serious: No
  Sender: FDA-Public Use
  Company Number: US-ABBVIE-22K-163-4404642-00

PATIENT
  Sex: Male

DRUGS (6)
  1. HUMIRA [Suspect]
     Active Substance: ADALIMUMAB
     Indication: Crohn^s disease
     Route: 058
     Dates: start: 20210929
  2. HUMIRA [Suspect]
     Active Substance: ADALIMUMAB
     Route: 058
     Dates: start: 202207
  3. HUMIRA [Suspect]
     Active Substance: ADALIMUMAB
     Dosage: 80MG DAY 15
     Route: 058
  4. HUMIRA [Suspect]
     Active Substance: ADALIMUMAB
     Dosage: 160MG DAY 1
     Route: 058
     Dates: start: 20210901
  5. HUMIRA [Suspect]
     Active Substance: ADALIMUMAB
     Indication: Crohn^s disease
     Dosage: TIME INTERVAL: 1 TOTAL: DAY 1
     Route: 058
     Dates: start: 20210901, end: 20210901
  6. HUMIRA [Suspect]
     Active Substance: ADALIMUMAB
     Dosage: TIME INTERVAL: 1 TOTAL: DAY 15
     Route: 058
     Dates: start: 20210916, end: 20210916

REACTIONS (2)
  - Crohn^s disease [Not Recovered/Not Resolved]
  - Drug ineffective [Unknown]

NARRATIVE: CASE EVENT DATE: 20220101
